FAERS Safety Report 8613514-5 (Version None)
Quarter: 2012Q3

REPORT INFORMATION
  Report Type: 
  Country: None (occurrence: None)
  Receive Date: 20120823
  Receipt Date: 20120807
  Transmission Date: 20120928
  Serious: Yes (Hospitalization)
  Sender: FDA-Public Use
  Company Number: JP-009507513-2012SP035864

PATIENT

DRUGS (20)
  1. ANTIVIRAL (UNSPECIFIED) [Suspect]
     Dosage: 1500 MG, QD
     Route: 048
     Dates: start: 20120601
  2. PEG-INTRON [Suspect]
     Indication: HEPATITIS C
     Dosage: 1.5MCG/KG/WEEK
     Route: 058
     Dates: start: 20120427
  3. TELAVIC [Suspect]
     Indication: HEPATITIS C
     Route: 048
     Dates: start: 20120427, end: 20120531
  4. ALLOPURINOL [Concomitant]
     Indication: HYPERURICAEMIA
     Dosage: 100 MG, QD
     Route: 048
     Dates: end: 20120501
  5. ACETAMINOPHEN [Concomitant]
     Indication: PRODUCT USED FOR UNKNOWN INDICATION
     Dosage: CALONAL 200
     Route: 048
     Dates: start: 20120427
  6. ELPINAN [Concomitant]
     Indication: PRODUCT USED FOR UNKNOWN INDICATION
     Dosage: DOSE: 20 INTO 2 TABLETS
     Route: 065
     Dates: start: 20120604
  7. MK-9355 [Concomitant]
     Route: 048
     Dates: end: 20120501
  8. FULMETA [Concomitant]
     Dosage: 5 G, PRN
     Route: 065
     Dates: start: 20120608
  9. REBETOL [Suspect]
     Dosage: 600 MG, QD
     Route: 048
     Dates: start: 20120601
  10. REBETOL [Suspect]
     Route: 048
     Dates: start: 20120713
  11. FEBURIC [Concomitant]
     Indication: HYPERURICAEMIA
     Dosage: 10 MG, QD
     Route: 048
     Dates: start: 20120502
  12. ELPINAN [Concomitant]
     Route: 048
  13. REBETOL [Suspect]
     Indication: HEPATITIS C
     Dosage: 800 MG, QD
     Route: 048
     Dates: start: 20120427, end: 20120531
  14. ESPO [Concomitant]
     Indication: PRODUCT USED FOR UNKNOWN INDICATION
     Dosage: DOSE: 12000 UNITS AS NEEDED
     Route: 058
     Dates: start: 20120518
  15. REBETOL [Suspect]
     Route: 048
     Dates: start: 20120601, end: 20120712
  16. ANTIVIRAL (UNSPECIFIED) [Suspect]
     Indication: HEPATITIS C
     Dosage: 2250 MG, QD
     Route: 048
     Dates: start: 20120427, end: 20120531
  17. FEBURIC [Concomitant]
     Route: 048
     Dates: start: 20120502, end: 20120621
  18. ESPO [Concomitant]
     Dosage: DOSE: 24000 UNITS AS NEEDED
     Route: 058
     Dates: start: 20120525
  19. TELAVIC [Suspect]
     Route: 048
     Dates: start: 20120601, end: 20120719
  20. FULMETA [Concomitant]
     Indication: PRODUCT USED FOR UNKNOWN INDICATION
     Dosage: FULMETA LOTION
     Route: 065
     Dates: start: 20120506

REACTIONS (1)
  - DECREASED APPETITE [None]
